FAERS Safety Report 13679816 (Version 1)
Quarter: 2017Q2

REPORT INFORMATION
  Report Type: Spontaneous
  Country: IT (occurrence: IT)
  Receive Date: 20170622
  Receipt Date: 20170622
  Transmission Date: 20170830
  Serious: Yes (Life-Threatening)
  Sender: FDA-Public Use
  Company Number: IT-FRESENIUS KABI-FK201705197

PATIENT
  Age: 37 Year
  Sex: Female
  Weight: 75 kg

DRUGS (5)
  1. PACLITAXEL 6MG/ML CONCENTRATE FOR SOLUTION FOR INFUSION [Suspect]
     Active Substance: PACLITAXEL
     Indication: BREAST CANCER STAGE III
     Route: 041
     Dates: start: 20170606, end: 20170606
  2. TRIMETON [Concomitant]
     Active Substance: CHLORPHENIRAMINE MALEATE
     Indication: PRODUCT USED FOR UNKNOWN INDICATION
  3. ONDANSETRONE ACCORD HEALTHCARE [Concomitant]
     Indication: VOMITING
     Route: 042
  4. SOLDESAM [Concomitant]
     Active Substance: DEXAMETHASONE
     Indication: PRODUCT USED FOR UNKNOWN INDICATION
     Route: 042
  5. RANITIDINE. [Concomitant]
     Active Substance: RANITIDINE
     Indication: ANTIALLERGIC THERAPY

REACTIONS (4)
  - Cardiac arrest [Recovered/Resolved]
  - Dyspnoea [Recovered/Resolved]
  - Anaphylactic shock [Recovered/Resolved]
  - Respiratory arrest [Recovered/Resolved]

NARRATIVE: CASE EVENT DATE: 20170606
